FAERS Safety Report 19055803 (Version 2)
Quarter: 2021Q2

REPORT INFORMATION
  Report Type: Spontaneous
  Country: JP (occurrence: JP)
  Receive Date: 20210325
  Receipt Date: 20210526
  Transmission Date: 20210717
  Serious: Yes (Hospitalization, Other)
  Sender: FDA-Public Use
  Company Number: JP-BIOVITRUM-2021JP2960

PATIENT
  Age: 9 Month
  Sex: Female
  Weight: 6 kg

DRUGS (3)
  1. SYNAGIS [Suspect]
     Active Substance: PALIVIZUMAB
     Route: 030
     Dates: start: 202011
  2. SYNAGIS [Suspect]
     Active Substance: PALIVIZUMAB
     Indication: LOW BIRTH WEIGHT BABY
     Route: 030
     Dates: start: 202007, end: 202008
  3. SYNAGIS [Suspect]
     Active Substance: PALIVIZUMAB
     Route: 030
     Dates: start: 20210317, end: 2021

REACTIONS (5)
  - Generalised tonic-clonic seizure [Recovered/Resolved]
  - Clonic convulsion [Recovered/Resolved]
  - Musculoskeletal stiffness [Unknown]
  - Atypical benign partial epilepsy [Unknown]
  - Loss of consciousness [Recovered/Resolved]

NARRATIVE: CASE EVENT DATE: 20210317
